FAERS Safety Report 9276790 (Version 1)
Quarter: 2013Q2

REPORT INFORMATION
  Report Type: Report from Study
  Country: US (occurrence: US)
  Receive Date: 20130507
  Receipt Date: 20130507
  Transmission Date: 20140414
  Serious: Yes (Hospitalization)
  Sender: FDA-Public Use
  Company Number: US-ALEXION-A201300578

PATIENT
  Age: 6 Year
  Sex: Male

DRUGS (12)
  1. ECULIZUMAB [Suspect]
     Indication: HAEMOLYTIC URAEMIC SYNDROME
     Dosage: 600 MG, Q2W
     Route: 042
  2. AMOXIL [Concomitant]
     Dosage: 13 ML BID FOR 10 DAYS
     Route: 048
  3. IBUPROFEN [Concomitant]
     Route: 048
  4. TYLENOL [Concomitant]
     Route: 048
  5. ASACOL [Concomitant]
     Dosage: 50 MG/KG/DAY Q8H
     Route: 048
  6. PREVACID [Concomitant]
     Route: 048
  7. IMURAN [Concomitant]
     Dosage: 1 TAB QD
     Route: 048
  8. FERROUS SULFATE [Concomitant]
     Dosage: 1 TAB QD
     Route: 048
  9. CULTURELLE [Concomitant]
     Dosage: 1 CAP BID
     Route: 048
  10. DELTASONE [Concomitant]
     Dosage: 3 TABS QAM
     Route: 048
  11. RAPAMUNE [Concomitant]
     Dosage: 2 TABS BID
     Route: 048
  12. BACTRIM [Concomitant]
     Dosage: 1 TAB EVERY MON, WED, FRI
     Route: 048

REACTIONS (3)
  - Pneumonia [Recovering/Resolving]
  - Pyrexia [Recovering/Resolving]
  - Cough [Recovering/Resolving]
